FAERS Safety Report 9514937 (Version 1)
Quarter: 2013Q3

REPORT INFORMATION
  Report Type: Spontaneous
  Country: US (occurrence: US)
  Receive Date: 20130911
  Receipt Date: 20130911
  Transmission Date: 20140515
  Serious: Yes (Other)
  Sender: FDA-Public Use
  Company Number: US-SANOFI-AVENTIS-2013SA089378

PATIENT
  Age: 59 Year
  Sex: Female

DRUGS (2)
  1. LANTUS [Suspect]
     Indication: TYPE 2 DIABETES MELLITUS
     Dosage: DOSE: 35-40 UNITS, START DATE: MAYBE SINCE 2000
     Route: 058
  2. METFORMIN [Concomitant]

REACTIONS (7)
  - Leukaemia [Not Recovered/Not Resolved]
  - Weight decreased [Unknown]
  - Pain in extremity [Not Recovered/Not Resolved]
  - Vomiting [Not Recovered/Not Resolved]
  - Blood glucose increased [Not Recovered/Not Resolved]
  - Stress [Not Recovered/Not Resolved]
  - Pain [Not Recovered/Not Resolved]
